FAERS Safety Report 11607706 (Version 1)
Quarter: 2015Q4

REPORT INFORMATION
  Report Type: Spontaneous
  Country: US (occurrence: US)
  Receive Date: 20151007
  Receipt Date: 20151007
  Transmission Date: 20160304
  Serious: Yes (Other)
  Sender: FDA-Public Use
  Company Number: US-PFIZER INC-2015331490

PATIENT
  Age: 80 Year
  Sex: Male
  Weight: 85 kg

DRUGS (1)
  1. ZOLOFT [Suspect]
     Active Substance: SERTRALINE HYDROCHLORIDE
     Indication: DEPRESSION
     Dosage: UNK,
     Route: 048

REACTIONS (7)
  - Agitation [Unknown]
  - Stress [Unknown]
  - Dementia Alzheimer^s type [Unknown]
  - Thinking abnormal [Unknown]
  - Memory impairment [Unknown]
  - Irritability [Unknown]
  - Disturbance in attention [Unknown]
